FAERS Safety Report 14340244 (Version 1)
Quarter: 2018Q1

REPORT INFORMATION
  Report Type: Report from Study
  Country: JP (occurrence: JP)
  Receive Date: 20180101
  Receipt Date: 20180101
  Transmission Date: 20180509
  Serious: Yes (Other)
  Sender: FDA-Public Use
  Company Number: JP-ROCHE-1836733

PATIENT

DRUGS (4)
  1. RIBAVIRIN. [Suspect]
     Active Substance: RIBAVIRIN
     Indication: CHRONIC HEPATITIS C
     Route: 065
  2. PEGINTERFERON ALFA-2B [Suspect]
     Active Substance: PEGINTERFERON ALFA-2B
     Indication: CHRONIC HEPATITIS C
     Route: 065
  3. TELAPREVIR [Suspect]
     Active Substance: TELAPREVIR
     Indication: CHRONIC HEPATITIS C
     Route: 065
  4. PEG-INTERFERON ALFA 2A [Suspect]
     Active Substance: PEGINTERFERON ALFA-2A
     Indication: CHRONIC HEPATITIS C
     Route: 065

REACTIONS (14)
  - Thrombocytopenia [Unknown]
  - Decreased appetite [Unknown]
  - Blood uric acid increased [Unknown]
  - Renal disorder [Unknown]
  - Rash [Unknown]
  - Dizziness [Unknown]
  - Renal impairment [Unknown]
  - Neurosis [Unknown]
  - Interstitial lung disease [Unknown]
  - Malaise [Unknown]
  - Anaemia [Unknown]
  - Skin disorder [Unknown]
  - Cerebral haemorrhage [Unknown]
  - Retinopathy [Unknown]
